FAERS Safety Report 20446483 (Version 3)
Quarter: 2022Q1

REPORT INFORMATION
  Report Type: Report from Study
  Country: DE (occurrence: DE)
  Receive Date: 20220208
  Receipt Date: 20220302
  Transmission Date: 20220423
  Serious: Yes (Congenital Anomaly)
  Sender: FDA-Public Use
  Company Number: DE-GILEAD-2022-0568748

PATIENT
  Sex: Male
  Weight: 2.97 kg

DRUGS (3)
  1. EMTRICITABINE\TENOFOVIR DISOPROXIL FUMARATE [Suspect]
     Active Substance: EMTRICITABINE\TENOFOVIR DISOPROXIL FUMARATE
     Indication: HIV infection
     Dosage: 445 MG, QD
     Route: 064
     Dates: start: 20210412
  2. RALTEGRAVIR [Suspect]
     Active Substance: RALTEGRAVIR
     Indication: HIV infection
     Dosage: 400 MG, BID
     Route: 064
     Dates: start: 20210412
  3. RALTEGRAVIR [Suspect]
     Active Substance: RALTEGRAVIR
     Dosage: 800 MG, QD
     Route: 048
     Dates: start: 20210412

REACTIONS (2)
  - Polydactyly [Unknown]
  - Foetal exposure during pregnancy [Recovered/Resolved]
